FAERS Safety Report 16307492 (Version 1)
Quarter: 2019Q2

REPORT INFORMATION
  Report Type: Spontaneous
  Country: US (occurrence: US)
  Receive Date: 20190514
  Receipt Date: 20190514
  Transmission Date: 20190711
  Serious: Yes (Other)
  Sender: FDA-Public Use
  Company Number: US-MALLINCKRODT-T201903461

PATIENT
  Age: 47 Year
  Sex: Female
  Weight: 124 kg

DRUGS (9)
  1. HYDROCODONE/ACETAMINOPHEN [Suspect]
     Active Substance: ACETAMINOPHEN\HYDROCODONE
     Indication: INTERVERTEBRAL DISC PROTRUSION
     Dosage: 1 DF, QID (1 TABLET 4 TIMES A DAY)
     Route: 065
     Dates: start: 2006
  2. LYRICA [Suspect]
     Active Substance: PREGABALIN
     Indication: NEUROPATHY PERIPHERAL
     Dosage: 225 MG, 2 CAPSULES AT BEDTIME
     Route: 065
     Dates: start: 2017
  3. LYRICA [Suspect]
     Active Substance: PREGABALIN
     Indication: PLANTAR FASCIITIS
  4. MORPHINE [Suspect]
     Active Substance: MORPHINE
     Indication: INTERVERTEBRAL DISC OPERATION
  5. MORPHINE [Suspect]
     Active Substance: MORPHINE
     Indication: INTERVERTEBRAL DISC PROTRUSION
     Dosage: 15 MG, BID (EVERY 12 HOURS)
     Route: 065
     Dates: start: 2006
  6. LYRICA [Suspect]
     Active Substance: PREGABALIN
     Indication: PSORIATIC ARTHROPATHY
  7. HYDROCODONE/ACETAMINOPHEN [Suspect]
     Active Substance: ACETAMINOPHEN\HYDROCODONE
     Indication: INTERVERTEBRAL DISC OPERATION
  8. LEVOTHYROXINE. [Concomitant]
     Active Substance: LEVOTHYROXINE
     Indication: AUTOIMMUNE THYROIDITIS
     Dosage: 125 ?G, BID
     Route: 065
  9. LYRICA [Suspect]
     Active Substance: PREGABALIN
     Indication: FIBROMYALGIA
     Dosage: 150MG DURING THE DAY AND 225MG AT NIGHT
     Route: 065

REACTIONS (4)
  - Pain in extremity [Recovering/Resolving]
  - Weight increased [Unknown]
  - Somnolence [Recovered/Resolved]
  - Intervertebral disc degeneration [Unknown]

NARRATIVE: CASE EVENT DATE: 201904
